FAERS Safety Report 21818992 (Version 11)
Quarter: 2025Q3

REPORT INFORMATION
  Report Type: Report from Study
  Country: CA (occurrence: CA)
  Receive Date: 20230104
  Receipt Date: 20250911
  Transmission Date: 20251020
  Serious: Yes (Hospitalization, Other)
  Sender: TAKEDA
  Company Number: CA-TAKEDA-2023TUS000652

PATIENT
  Sex: Male

DRUGS (29)
  1. VEDOLIZUMAB [Suspect]
     Active Substance: VEDOLIZUMAB
     Indication: Colitis ulcerative
  2. VEDOLIZUMAB [Suspect]
     Active Substance: VEDOLIZUMAB
  3. VEDOLIZUMAB [Suspect]
     Active Substance: VEDOLIZUMAB
  4. VEDOLIZUMAB [Suspect]
     Active Substance: VEDOLIZUMAB
  5. VEDOLIZUMAB [Suspect]
     Active Substance: VEDOLIZUMAB
  6. VEDOLIZUMAB [Suspect]
     Active Substance: VEDOLIZUMAB
  7. VEDOLIZUMAB [Suspect]
     Active Substance: VEDOLIZUMAB
  8. VEDOLIZUMAB [Suspect]
     Active Substance: VEDOLIZUMAB
  9. VEDOLIZUMAB [Suspect]
     Active Substance: VEDOLIZUMAB
  10. VEDOLIZUMAB [Suspect]
     Active Substance: VEDOLIZUMAB
  11. PREDNISONE [Concomitant]
     Active Substance: PREDNISONE
  12. CLOPIDOGREL [Concomitant]
     Active Substance: CLOPIDOGREL BISULFATE
  13. ASPIRIN [Concomitant]
     Active Substance: ASPIRIN
  14. SPIRONOLACTONE [Concomitant]
     Active Substance: SPIRONOLACTONE
  15. FUROSEMIDE [Concomitant]
     Active Substance: FUROSEMIDE
  16. JARDIANCE [Concomitant]
     Active Substance: EMPAGLIFLOZIN
  17. FERROUS FUMARATE [Concomitant]
     Active Substance: FERROUS FUMARATE
  18. ROSUVASTATIN [Concomitant]
     Active Substance: ROSUVASTATIN
  19. METOPROLOL [Concomitant]
     Active Substance: METOPROLOL
  20. APIXABAN [Concomitant]
     Active Substance: APIXABAN
  21. BREO ELLIPTA [Concomitant]
     Active Substance: FLUTICASONE FUROATE\VILANTEROL TRIFENATATE
  22. BRICANYL [Concomitant]
     Active Substance: TERBUTALINE SULFATE
  23. SPIRIVA [Concomitant]
     Active Substance: TIOTROPIUM BROMIDE MONOHYDRATE
  24. METHIMAZOLE [Concomitant]
     Active Substance: METHIMAZOLE
     Indication: Asthma
  25. RAMIPRIL [Concomitant]
     Active Substance: RAMIPRIL
  26. PREGABALIN [Concomitant]
     Active Substance: PREGABALIN
  27. BILASTINE [Concomitant]
     Active Substance: BILASTINE
  28. BISOPROLOL [Concomitant]
     Active Substance: BISOPROLOL
  29. ALLEGRA [Concomitant]
     Active Substance: FEXOFENADINE HYDROCHLORIDE

REACTIONS (6)
  - Transient ischaemic attack [Recovering/Resolving]
  - Renal failure [Recovering/Resolving]
  - Diabetic foot infection [Not Recovered/Not Resolved]
  - Heart rate increased [Not Recovered/Not Resolved]
  - Limb injury [Recovering/Resolving]
  - Blood pressure increased [Unknown]
